FAERS Safety Report 7975508-2 (Version None)
Quarter: 2011Q4

REPORT INFORMATION
  Report Type: 
  Country: None (occurrence: None)
  Receive Date: 20111213
  Receipt Date: 20110929
  Transmission Date: 20120403
  Serious: No
  Sender: FDA-Public Use
  Company Number: US-AMGEN-USASP2011050533

PATIENT
  Age: 52 Year
  Sex: Female

DRUGS (3)
  1. ENBREL [Suspect]
     Indication: FIBROMYALGIA
     Dosage: 50 MG, 2 TIMES/WK
     Dates: start: 20030913
  2. ENBREL [Suspect]
     Indication: PSORIATIC ARTHROPATHY
  3. ENBREL [Suspect]
     Indication: PSORIASIS

REACTIONS (7)
  - INTERVERTEBRAL DISC DEGENERATION [None]
  - DRUG INEFFECTIVE [None]
  - STRESS [None]
  - FIBROMYALGIA [None]
  - PSORIATIC ARTHROPATHY [None]
  - BURSITIS [None]
  - BACK PAIN [None]
